FAERS Safety Report 10039057 (Version 1)
Quarter: 2014Q1

REPORT INFORMATION
  Report Type: Spontaneous
  Country: US (occurrence: None)
  Receive Date: 20140306
  Receipt Date: 20140306
  Transmission Date: 20141002
  Serious: Yes (Other)
  Sender: FDA-Public Use
  Company Number: 163-21880-13063735

PATIENT
  Age: 53 Year
  Sex: Female
  Weight: 77.57 kg

DRUGS (2)
  1. REVLIMID [Suspect]
     Indication: PLASMA CELL MYELOMA
     Route: 048
     Dates: start: 20110906
  2. REVLIMID [Suspect]
     Indication: STEM CELL TRANSPLANT
     Route: 048
     Dates: start: 20110906

REACTIONS (2)
  - Hepatic function abnormal [None]
  - Chest discomfort [None]
